FAERS Safety Report 7394537-3 (Version None)
Quarter: 2011Q2

REPORT INFORMATION
  Report Type: 
  Country: None (occurrence: None)
  Receive Date: 20110405
  Receipt Date: 20110331
  Transmission Date: 20111010
  Serious: Yes (Death, Hospitalization)
  Sender: FDA-Public Use
  Company Number: PHFR2011GB02127

PATIENT
  Sex: Male

DRUGS (2)
  1. CLOZARIL [Suspect]
     Indication: SCHIZOPHRENIA
     Dosage: UNK DF, UNK
     Dates: start: 20050629
  2. CLOZARIL [Suspect]
     Dosage: 25 MG MANE, 50 MG NOCTE
     Route: 048

REACTIONS (5)
  - ASTHENIA [None]
  - LOWER RESPIRATORY TRACT INFECTION [None]
  - PARKINSON'S DISEASE [None]
  - DEMENTIA WITH LEWY BODIES [None]
  - PNEUMONIA [None]
